FAERS Safety Report 13425399 (Version 1)
Quarter: 2017Q2

REPORT INFORMATION
  Report Type: Report from Study
  Country: None (occurrence: US)
  Receive Date: 20170411
  Receipt Date: 20170411
  Transmission Date: 20170830
  Serious: Yes (Hospitalization, Other)
  Sender: FDA-Public Use
  Company Number: US-ABBVIE-17K-163-1836271-00

PATIENT
  Age: 72 Year
  Sex: Male
  Weight: 79.9 kg

DRUGS (6)
  1. HUMIRA [Suspect]
     Active Substance: ADALIMUMAB
     Indication: CROHN^S DISEASE
     Route: 058
     Dates: start: 201610
  2. BALSALAZIDE SODIUM [Concomitant]
     Active Substance: BALSALAZIDE
     Indication: CROHN^S DISEASE
  3. MEXILETINE HYDROCHLORIDE. [Concomitant]
     Active Substance: MEXILETINE HYDROCHLORIDE
     Indication: ARRHYTHMIA
  4. ATORVASTATIN [Concomitant]
     Active Substance: ATORVASTATIN
     Indication: BLOOD CHOLESTEROL INCREASED
  5. ASPIRIN. [Concomitant]
     Active Substance: ASPIRIN
     Indication: PRODUCT USED FOR UNKNOWN INDICATION
  6. METOPROLOL TARTRATE. [Concomitant]
     Active Substance: METOPROLOL TARTRATE
     Indication: HYPERTENSION

REACTIONS (12)
  - Colitis ischaemic [Unknown]
  - Gastrointestinal haemorrhage [Recovered/Resolved]
  - Joint swelling [Not Recovered/Not Resolved]
  - Atelectasis [Unknown]
  - Peripheral swelling [Not Recovered/Not Resolved]
  - Fall [Recovered/Resolved]
  - Diverticulum intestinal [Unknown]
  - Viral upper respiratory tract infection [Unknown]
  - Pleural effusion [Unknown]
  - Hypotension [Recovered/Resolved]
  - Joint stiffness [Not Recovered/Not Resolved]
  - Bronchitis [Recovered/Resolved]

NARRATIVE: CASE EVENT DATE: 2016
